FAERS Safety Report 12914145 (Version 2)
Quarter: 2016Q4

REPORT INFORMATION
  Report Type: Report from Study
  Country: ES (occurrence: ES)
  Receive Date: 20161106
  Receipt Date: 20161106
  Transmission Date: 20170207
  Serious: Yes (Hospitalization)
  Sender: FDA-Public Use
  Company Number: ES-ASTRAZENECA-2016SF13805

PATIENT
  Age: 92 Year
  Sex: Female

DRUGS (3)
  1. LANTANON [Suspect]
     Active Substance: MIANSERIN HYDROCHLORIDE
     Indication: MIXED DEMENTIA
     Dosage: 10 MG DAILY (50 TABLETS)
     Route: 065
     Dates: start: 2016, end: 201604
  2. SEROQUEL XR [Suspect]
     Active Substance: QUETIAPINE FUMARATE
     Indication: MIXED DEMENTIA
     Dosage: 100 MG TWO TIMES A DAY (60 TABLETS)
     Route: 048
     Dates: start: 2016, end: 201604
  3. SEROXAT [Suspect]
     Active Substance: PAROXETINE HYDROCHLORIDE
     Indication: MIXED DEMENTIA
     Dosage: 20 MG DAILY (14 TABLETS)
     Route: 065
     Dates: start: 2016, end: 201604

REACTIONS (2)
  - Urinary tract infection [Unknown]
  - Stupor [Recovering/Resolving]

NARRATIVE: CASE EVENT DATE: 201604
